FAERS Safety Report 5073203-3 (Version None)
Quarter: 2006Q3

REPORT INFORMATION
  Report Type: 
  Country: None (occurrence: None)
  Receive Date: 20060710
  Receipt Date: 20060525
  Transmission Date: 20061208
  Serious: Yes (Hospitalization)
  Sender: FDA-Public Use
  Company Number: 2006SP002068

PATIENT
  Sex: Female

DRUGS (1)
  1. XOPENEX HFA [Suspect]
     Dosage: INHALATION
     Dates: start: 20060425, end: 20060501

REACTIONS (1)
  - CARDIAC DISORDER [None]
